FAERS Safety Report 4758954-X (Version None)
Quarter: 2005Q3

REPORT INFORMATION
  Report Type: 
  Country: None (occurrence: None)
  Receive Date: 20050826
  Receipt Date: 20050815
  Transmission Date: 20060218
  Serious: Yes (Other)
  Sender: FDA-Public Use
  Company Number: 2005069951

PATIENT
  Sex: Female
  Weight: 70 kg

DRUGS (3)
  1. AROMASIN [Suspect]
     Indication: BREAST CANCER
     Dosage: 25 MG (DAILY), ORAL
     Route: 048
     Dates: start: 20020101
  2. MARCUMAR [Concomitant]
  3. LEVOTHYROXINE SODIUM [Concomitant]

REACTIONS (3)
  - ARTHRALGIA [None]
  - PARAESTHESIA [None]
  - TENDON RUPTURE [None]
